FAERS Safety Report 7836154-4 (Version None)
Quarter: 2011Q4

REPORT INFORMATION
  Report Type: 
  Country: None (occurrence: None)
  Receive Date: 20111024
  Receipt Date: 20111013
  Transmission Date: 20120403
  Serious: Yes (Hospitalization)
  Sender: FDA-Public Use
  Company Number: JP-ASTRAZENECA-2011SE63198

PATIENT
  Age: 31 Year
  Sex: Male

DRUGS (3)
  1. MEROPENEM [Suspect]
     Indication: PNEUMONIA
     Route: 042
     Dates: start: 20110806, end: 20110806
  2. MEROPENEM [Suspect]
     Route: 042
     Dates: start: 20110807, end: 20110811
  3. MEROPENEM [Suspect]
     Route: 042
     Dates: start: 20110812, end: 20110813

REACTIONS (2)
  - ECZEMA [None]
  - PRURITUS GENERALISED [None]
